FAERS Safety Report 25926215 (Version 1)
Quarter: 2025Q4

REPORT INFORMATION
  Report Type: Spontaneous
  Country: EU (occurrence: EU)
  Receive Date: 20251015
  Receipt Date: 20251015
  Transmission Date: 20260118
  Serious: Yes (Hospitalization, Other)
  Sender: DR REDDYS
  Company Number: None

PATIENT
  Sex: Female
  Weight: 94 kg

DRUGS (12)
  1. HYDROCHLOROTHIAZIDE [Suspect]
     Active Substance: HYDROCHLOROTHIAZIDE
     Indication: Blood pressure abnormal
     Route: 065
  2. BISOPROLOL [Suspect]
     Active Substance: BISOPROLOL
     Indication: Blood pressure increased
     Dosage: QD (1-0-0)
     Route: 065
  3. BISOPROLOL [Suspect]
     Active Substance: BISOPROLOL
     Indication: Heart rate increased
  4. VALSARTAN [Suspect]
     Active Substance: VALSARTAN
     Indication: Product used for unknown indication
     Dosage: UNK
     Route: 065
  5. VALSARTAN [Suspect]
     Active Substance: VALSARTAN
     Dosage: UNK (START DATE: 2022)
     Route: 065
     Dates: start: 2022
  6. LERCANIDIPINE [Suspect]
     Active Substance: LERCANIDIPINE
     Indication: Product used for unknown indication
     Dosage: UNK??--2022
     Route: 065
     Dates: end: 202212
  7. EXFORGE [Suspect]
     Active Substance: AMLODIPINE BESYLATE\VALSARTAN
     Indication: Hypertension
     Dosage: 1 DOSAGE FORM, QD (ONCE IN THE MORNING / 1X DAILY)??--2017
     Route: 065
  8. EXFORGE [Suspect]
     Active Substance: AMLODIPINE BESYLATE\VALSARTAN
     Dosage: 1 DOSAGE FORM, QD
     Route: 065
  9. EXFORGE [Suspect]
     Active Substance: AMLODIPINE BESYLATE\VALSARTAN
     Dosage: 1 DOSAGE FORM, BID (2 DF, QD)
     Route: 065
  10. EXFORGE [Suspect]
     Active Substance: AMLODIPINE BESYLATE\VALSARTAN
     Dosage: 2 DOSAGE FORM
     Route: 065
  11. VALSARTAN [Suspect]
     Active Substance: VALSARTAN
     Indication: Product used for unknown indication
     Dosage: UNK
     Route: 065
  12. VALSARTAN [Suspect]
     Active Substance: VALSARTAN
     Indication: Product used for unknown indication
     Dosage: UNK??--2022
     Route: 065

REACTIONS (19)
  - Bladder cancer [Not Recovered/Not Resolved]
  - Hypertension [Not Recovered/Not Resolved]
  - Arrhythmia [Unknown]
  - Fall [Unknown]
  - Rib fracture [Unknown]
  - Atrial fibrillation [Unknown]
  - General physical health deterioration [Unknown]
  - Blood pressure increased [Unknown]
  - Heart rate increased [Recovering/Resolving]
  - Peripheral swelling [Unknown]
  - Joint swelling [Unknown]
  - Oedema [Unknown]
  - Pain [Unknown]
  - Neuralgia [Unknown]
  - Fatigue [Unknown]
  - Sinusitis [Not Recovered/Not Resolved]
  - Dizziness [Not Recovered/Not Resolved]
  - Headache [Not Recovered/Not Resolved]
  - Drug ineffective [Unknown]

NARRATIVE: CASE EVENT DATE: 20160101
